FAERS Safety Report 9280215 (Version 1)
Quarter: 2013Q2

REPORT INFORMATION
  Report Type: Spontaneous
  Country: DE (occurrence: DE)
  Receive Date: 20130509
  Receipt Date: 20130509
  Transmission Date: 20140414
  Serious: Yes (Death, Hospitalization)
  Sender: FDA-Public Use
  Company Number: DE-JNJFOC-20130202749

PATIENT
  Age: 99 Year
  Sex: Female
  Weight: 75 kg

DRUGS (10)
  1. XARELTO [Suspect]
     Indication: CEREBROVASCULAR ACCIDENT PROPHYLAXIS
     Route: 048
     Dates: start: 20130109
  2. XARELTO [Suspect]
     Indication: ATRIAL FIBRILLATION
     Route: 048
     Dates: start: 20130109
  3. BISO LICH [Concomitant]
     Indication: HYPERTENSION
     Route: 065
  4. BISO LICH [Concomitant]
     Indication: CARDIAC FAILURE
     Route: 065
  5. RAMIPRIL [Concomitant]
     Indication: HYPERTENSION
     Route: 065
  6. RAMIPRIL [Concomitant]
     Indication: CARDIAC FAILURE
     Route: 065
  7. TORASEMID [Concomitant]
     Indication: HYPERTENSION
     Route: 065
  8. TORASEMID [Concomitant]
     Indication: CARDIAC FAILURE
     Route: 065
  9. NOVAMINSULFON [Concomitant]
     Indication: PAIN
     Route: 065
  10. WARFARIN [Concomitant]
     Route: 065

REACTIONS (3)
  - Multi-organ failure [Fatal]
  - Somnolence [Fatal]
  - Upper gastrointestinal haemorrhage [Unknown]
